FAERS Safety Report 12969877 (Version 1)
Quarter: 2016Q4

REPORT INFORMATION
  Report Type: Report from Study
  Country: BR (occurrence: BR)
  Receive Date: 20161123
  Receipt Date: 20161123
  Transmission Date: 20170207
  Serious: Yes (Other)
  Sender: FDA-Public Use
  Company Number: ALCN2016BR007797

PATIENT
  Age: 74 Year
  Sex: Female
  Weight: 46 kg

DRUGS (2)
  1. BRIMONIDINE TARTRATE. [Concomitant]
     Active Substance: BRIMONIDINE TARTRATE
     Indication: PRODUCT USED FOR UNKNOWN INDICATION
     Route: 065
  2. DUOTRAV BAC-FREE [Suspect]
     Active Substance: TIMOLOL\TRAVOPROST
     Indication: PRODUCT USED FOR UNKNOWN INDICATION
     Route: 065

REACTIONS (1)
  - Cataract [Unknown]

NARRATIVE: CASE EVENT DATE: 201410
